FAERS Safety Report 6920302-4 (Version None)
Quarter: 2010Q3

REPORT INFORMATION
  Report Type: 
  Country: None (occurrence: None)
  Receive Date: 20100811
  Receipt Date: 20100802
  Transmission Date: 20110219
  Serious: Yes (Death, Other)
  Sender: FDA-Public Use
  Company Number: US-AMGEN-QUU424936

PATIENT
  Sex: Male
  Weight: 61.3 kg

DRUGS (10)
  1. NPLATE [Suspect]
     Indication: THROMBOCYTOPENIA
     Route: 058
     Dates: start: 20100212, end: 20100409
  2. PROCRIT [Concomitant]
  3. AVODART [Concomitant]
  4. FUROSEMIDE [Concomitant]
  5. KLOR-CON [Concomitant]
  6. METOPROLOL SUCCINATE [Concomitant]
  7. TERAZOSIN HCL [Concomitant]
  8. VITAMIN B6 [Concomitant]
  9. VITAMIN D [Concomitant]
  10. PLATELETS [Concomitant]

REACTIONS (2)
  - DRUG INEFFECTIVE [None]
  - MYELODYSPLASTIC SYNDROME [None]
